FAERS Safety Report 6802201-1 (Version None)
Quarter: 2010Q2

REPORT INFORMATION
  Report Type: 
  Country: None (occurrence: None)
  Receive Date: 20100629
  Receipt Date: 20091211
  Transmission Date: 20101027
  Serious: No
  Sender: FDA-Public Use
  Company Number: US-PFIZER INC-2007055320

PATIENT
  Sex: Male
  Weight: 81.633 kg

DRUGS (7)
  1. VIAGRA [Suspect]
     Indication: ERECTILE DYSFUNCTION
     Dosage: 50 MG, AS NEEDED
     Route: 048
     Dates: start: 20020101
  2. VIAGRA [Suspect]
     Dosage: 50 MG, AS NEEDED
     Route: 048
  3. SYNTHROID [Concomitant]
     Indication: THYROID DISORDER
     Dosage: 0.88 MG, 1X/DAY
  4. LIPITOR [Concomitant]
     Indication: BLOOD CHOLESTEROL
  5. DEPO-TESTOSTERONE [Concomitant]
  6. PREDNISONE [Concomitant]
     Dosage: 5 MG, 1X/DAY
  7. ALL OTHER THERAPEUTIC PRODUCTS [Concomitant]

REACTIONS (3)
  - DRUG INEFFECTIVE [None]
  - ERYTHEMA [None]
  - INFLAMMATION [None]
